FAERS Safety Report 5368693-2 (Version None)
Quarter: 2007Q2

REPORT INFORMATION
  Report Type: 
  Country: None (occurrence: None)
  Receive Date: 20070625
  Receipt Date: 20070329
  Transmission Date: 20071010
  Serious: No
  Sender: FDA-Public Use
  Company Number: US-BRISTOL-MYERS SQUIBB COMPANY-13731997

PATIENT
  Sex: Female
  Weight: 48 kg

DRUGS (19)
  1. ORENCIA [Suspect]
     Dates: start: 20070222
  2. ATENOLOL [Concomitant]
  3. LORATADINE [Concomitant]
  4. FAMOTIDINE [Concomitant]
  5. DOXYCYCLINE [Concomitant]
  6. ISONIAZID [Concomitant]
  7. LEVOTHROID [Concomitant]
  8. LOVASTATIN [Concomitant]
  9. PAXIL [Concomitant]
  10. CARDIZEM [Concomitant]
  11. SELEGILINE HCL [Concomitant]
  12. TRENTAL [Concomitant]
  13. PYRIDOXINE HCL [Concomitant]
  14. CALCIUM CITRATE [Concomitant]
  15. MULTI-VITAMIN [Concomitant]
  16. DETROL [Concomitant]
  17. ATIVAN [Concomitant]
  18. TYLENOL + CODEINE NO. 4 [Concomitant]
  19. ZOFRAN [Concomitant]

REACTIONS (1)
  - DIPLOPIA [None]
